FAERS Safety Report 11707596 (Version 1)
Quarter: 2015Q4

REPORT INFORMATION
  Report Type: Spontaneous
  Country: US (occurrence: US)
  Receive Date: 20151104
  Receipt Date: 20151104
  Transmission Date: 20160304
  Serious: No
  Sender: FDA-Public Use
  Company Number: US-ELI_LILLY_AND_COMPANY-US201106000121

PATIENT
  Sex: Female

DRUGS (8)
  1. NAMENDA [Concomitant]
     Active Substance: MEMANTINE HYDROCHLORIDE
     Dosage: 10 MG, UNK
     Route: 048
  2. LASIX [Concomitant]
     Active Substance: FUROSEMIDE
     Dosage: 20 MG, QD
  3. ATENOL [Concomitant]
     Active Substance: ATENOLOL
     Dosage: 25 MG, QD
     Route: 048
  4. ZOLOFT [Concomitant]
     Active Substance: SERTRALINE HYDROCHLORIDE
     Dosage: 50 MG, QD
  5. FORTEO [Suspect]
     Active Substance: TERIPARATIDE
     Dosage: 20 UG, QD
     Route: 058
     Dates: start: 201001
  6. TYLENOL [Concomitant]
     Active Substance: ACETAMINOPHEN
  7. CRESTOR [Concomitant]
     Active Substance: ROSUVASTATIN CALCIUM
     Dosage: 40 MG, QD
     Route: 048
  8. ZESTRIL [Concomitant]
     Active Substance: LISINOPRIL
     Dosage: 10 MG, QD

REACTIONS (9)
  - Bone loss [Not Recovered/Not Resolved]
  - Nausea [Unknown]
  - Spinal osteoarthritis [Not Recovered/Not Resolved]
  - Loose tooth [Not Recovered/Not Resolved]
  - Fear of disease [Unknown]
  - Dysphagia [Unknown]
  - Gait disturbance [Not Recovered/Not Resolved]
  - Jaw disorder [Unknown]
  - Muscular weakness [Unknown]
